FAERS Safety Report 6784223-2 (Version None)
Quarter: 2010Q2

REPORT INFORMATION
  Report Type: 
  Country: None (occurrence: None)
  Receive Date: 20100617
  Receipt Date: 20100601
  Transmission Date: 20101027
  Serious: Yes (Hospitalization, Other)
  Sender: FDA-Public Use
  Company Number: 2010002139

PATIENT
  Age: 41 Year
  Sex: Male

DRUGS (19)
  1. ERLOTINIB HYDROCHLORIDE [Suspect]
     Indication: HEPATIC NEOPLASM MALIGNANT
     Dosage: (150 MG, QD), ORAL
     Route: 048
     Dates: start: 20100416
  2. SORAFENIB [Suspect]
     Indication: HEPATIC NEOPLASM MALIGNANT
     Dosage: (800 MG, QD), ORAL
     Route: 048
     Dates: start: 20100416
  3. ACETAMINOPHEN [Concomitant]
  4. GLYCERYL GUAIACOLATE (GUAIFENESIN) [Concomitant]
  5. PHENYLEPHRINE HYDROCHLORIDE (PHENYLEPHRINE HYDROCHLORIDE) [Concomitant]
  6. NOSCAPINE (NOSCAPINE) [Concomitant]
  7. MUCAINE (MUCAINE) [Concomitant]
  8. TIMEPIDIUM BROMIDE (TIMEPIDIUM BROMIDE) [Concomitant]
  9. KENALOG [Concomitant]
  10. NEXIUM [Concomitant]
  11. YOUMATYL [Concomitant]
  12. BARACLUDE [Concomitant]
  13. STAZYME [Concomitant]
  14. MORPRIDE [Concomitant]
  15. GASCON (DIMETICONE) [Concomitant]
  16. HYOSCINE HBR HYT [Concomitant]
  17. SULMATYL [Concomitant]
  18. MAGNESIUM OXIDE (MAGNESIUM OXIDE) [Concomitant]
  19. SUWELL [Concomitant]

REACTIONS (6)
  - ABDOMINAL INFECTION [None]
  - MUCOSAL INFLAMMATION [None]
  - RASH [None]
  - TINNITUS [None]
  - TUMOUR ASSOCIATED FEVER [None]
  - UPPER RESPIRATORY TRACT INFECTION [None]
